APPROVED DRUG PRODUCT: TERRAMYCIN-POLYMYXIN
Active Ingredient: OXYTETRACYCLINE HYDROCHLORIDE; POLYMYXIN B SULFATE
Strength: EQ 100MG BASE;100,000 UNITS
Dosage Form/Route: TABLET;VAGINAL
Application: A061009 | Product #001
Applicant: PFIZER LABORATORIES DIV PFIZER INC
Approved: Approved Prior to Jan 1, 1982 | RLD: No | RS: No | Type: DISCN